FAERS Safety Report 5128408-X (Version None)
Quarter: 2006Q4

REPORT INFORMATION
  Report Type: 
  Country: None (occurrence: None)
  Receive Date: 20061017
  Receipt Date: 20030722
  Transmission Date: 20070319
  Serious: Yes (Other)
  Sender: FDA-Public Use
  Company Number: ES-ROCHE-342801

PATIENT
  Age: 35 Year
  Sex: Male
  Weight: 71 kg

DRUGS (5)
  1. PEGASYS [Suspect]
     Route: 058
     Dates: start: 20030505, end: 20030714
  2. REBETOL [Suspect]
     Route: 048
     Dates: start: 20030505, end: 20030714
  3. LAMIVUDINE [Concomitant]
     Indication: HIV INFECTION
  4. D4T [Concomitant]
     Indication: HIV INFECTION
  5. EFAVIRENZ [Concomitant]
     Indication: HIV INFECTION

REACTIONS (1)
  - EPILEPSY [None]
